FAERS Safety Report 5325306-3 (Version None)
Quarter: 2007Q2

REPORT INFORMATION
  Report Type: 
  Country: None (occurrence: None)
  Receive Date: 20070515
  Receipt Date: 20070504
  Transmission Date: 20071010
  Serious: Yes (Other)
  Sender: FDA-Public Use
  Company Number: NL-MERCK-0705NLD00007

PATIENT
  Age: 32 Year
  Sex: Female

DRUGS (1)
  1. PROPECIA [Suspect]
     Indication: ALOPECIA
     Route: 048

REACTIONS (2)
  - INTRA-UTERINE DEATH [None]
  - TRANSMISSION OF DRUG VIA SEMEN [None]
